FAERS Safety Report 5590935-9 (Version None)
Quarter: 2007Q4

REPORT INFORMATION
  Report Type: 
  Country: None (occurrence: None)
  Receive Date: 20071214
  Receipt Date: 20070925
  Transmission Date: 20080405
  Serious: Yes (Life-Threatening, Hospitalization, Other)
  Sender: FDA-Public Use
  Company Number: 2007026412

PATIENT
  Age: 74 Year
  Sex: Male
  Weight: 74 kg

DRUGS (12)
  1. ERAXIS [Suspect]
     Indication: CANDIDIASIS
     Dosage: SEE IMAGE
     Route: 042
     Dates: start: 20070316, end: 20070316
  2. ERAXIS [Suspect]
     Indication: CANDIDIASIS
     Dosage: SEE IMAGE
     Route: 042
     Dates: start: 20070317, end: 20070317
  3. ERAXIS [Suspect]
     Indication: CANDIDIASIS
     Dosage: SEE IMAGE
     Route: 042
     Dates: start: 20070317, end: 20070329
  4. ACETAMINOPHEN [Concomitant]
  5. ALBUTEROL [Concomitant]
  6. AMIODARONE HCL [Concomitant]
  7. FUROSEMIDE [Concomitant]
  8. HEPARIN [Concomitant]
  9. IPRATROPIUM BROMIDE [Concomitant]
  10. OMEPRAZOLE [Concomitant]
  11. TEMAZEPAM [Concomitant]
  12. TRAZODONE HCL [Concomitant]

REACTIONS (1)
  - THROMBOCYTOPENIA [None]
